FAERS Safety Report 9897661 (Version 3)
Quarter: 2014Q1

REPORT INFORMATION
  Report Type: Report from Study
  Country: DE (occurrence: DE)
  Receive Date: 20140214
  Receipt Date: 20140320
  Transmission Date: 20141002
  Serious: Yes (Hospitalization)
  Sender: FDA-Public Use
  Company Number: DE-ABBVIE-13P-062-1122267-00

PATIENT
  Age: 59 Year
  Sex: Female
  Weight: 82 kg

DRUGS (11)
  1. HUMIRA [Suspect]
     Indication: RHEUMATOID ARTHRITIS
     Route: 058
     Dates: start: 20130205, end: 20130408
  2. ARCOXIA [Concomitant]
     Indication: PRODUCT USED FOR UNKNOWN INDICATION
     Route: 048
     Dates: start: 20090115
  3. OMEPRAZOLE [Concomitant]
     Indication: PRODUCT USED FOR UNKNOWN INDICATION
     Route: 048
     Dates: start: 20081106
  4. METHOTREXATE [Concomitant]
     Indication: PRODUCT USED FOR UNKNOWN INDICATION
     Dates: start: 201112
  5. FOLSAN [Concomitant]
     Indication: PRODUCT USED FOR UNKNOWN INDICATION
  6. FORMATRIS [Concomitant]
     Indication: PRODUCT USED FOR UNKNOWN INDICATION
  7. VIANI [Concomitant]
     Indication: PRODUCT USED FOR UNKNOWN INDICATION
  8. AMINEURIN [Concomitant]
     Indication: PRODUCT USED FOR UNKNOWN INDICATION
  9. RAMIPRIL [Concomitant]
     Indication: PRODUCT USED FOR UNKNOWN INDICATION
  10. PANTOPRAZOLE [Concomitant]
     Indication: PRODUCT USED FOR UNKNOWN INDICATION
  11. NOVAMINSULFON [Concomitant]
     Indication: PRODUCT USED FOR UNKNOWN INDICATION
     Dosage: 500MG PRN UP TO 6 TAB/DAY

REACTIONS (20)
  - Cholangitis [Unknown]
  - Cholelithiasis [Not Recovered/Not Resolved]
  - Cholecystitis acute [Not Recovered/Not Resolved]
  - Abdominal pain [Unknown]
  - Nausea [Unknown]
  - Vomiting [Unknown]
  - Chromaturia [Unknown]
  - Transaminases increased [Unknown]
  - Infection [Unknown]
  - Peritonitis [Unknown]
  - Pleural effusion [Unknown]
  - Pancreatitis [Unknown]
  - Diverticulum intestinal [Unknown]
  - Faecaloma [Unknown]
  - General physical health deterioration [Unknown]
  - Pancreatitis [Unknown]
  - Gastritis [Unknown]
  - Cyst [Unknown]
  - Blood cholinesterase increased [Unknown]
  - Dysgeusia [Unknown]
